FAERS Safety Report 9799642 (Version 4)
Quarter: 2014Q2

REPORT INFORMATION
  Report Type: Spontaneous
  Country: GB (occurrence: GB)
  Receive Date: 20140106
  Receipt Date: 20140502
  Transmission Date: 20141212
  Serious: Yes (Other)
  Sender: FDA-Public Use
  Company Number: GB-PFIZER INC-2014001658

PATIENT
  Age: 38 Year
  Sex: Female
  Weight: 74 kg

DRUGS (1)
  1. SERTRALINE HCL [Suspect]
     Indication: DEPRESSION
     Dosage: 50 MG, UNK
     Route: 048
     Dates: start: 20010101

REACTIONS (1)
  - Pre-eclampsia [Unknown]
